FAERS Safety Report 4435075-7 (Version None)
Quarter: 2004Q3

REPORT INFORMATION
  Report Type: 
  Country: None (occurrence: None)
  Receive Date: 20040825
  Receipt Date: 20040825
  Transmission Date: 20050211
  Serious: No
  Sender: FDA-Public Use
  Company Number: None

PATIENT
  Sex: Female
  Weight: 61.2356 kg

DRUGS (14)
  1. HUMIRA [Suspect]
     Indication: RHEUMATOID ARTHRITIS
     Dosage: 25 MG SUB Q WEEKLY
     Route: 058
  2. NAPROXEN [Concomitant]
  3. DIGOXIN [Concomitant]
  4. PREDNISONE [Concomitant]
  5. PLAQUENIL [Concomitant]
  6. MINOCYCLINE HCL [Concomitant]
  7. AZULFIDINE [Concomitant]
  8. ENBREL [Concomitant]
  9. LOTENSIN [Concomitant]
  10. ULTRACET [Concomitant]
  11. METHOTREXATE [Concomitant]
  12. COLACE [Concomitant]
  13. ARAVA [Concomitant]
  14. NORTRIPTYLINE HYDROCHLORIDE [Concomitant]

REACTIONS (1)
  - HYPERLIPIDAEMIA [None]
